FAERS Safety Report 5056044-2 (Version None)
Quarter: 2006Q3

REPORT INFORMATION
  Report Type: 
  Country: None (occurrence: None)
  Receive Date: 20060717
  Receipt Date: 20060717
  Transmission Date: 20061208
  Serious: No
  Sender: FDA-Public Use
  Company Number: None

PATIENT
  Age: 32 Year
  Sex: Female

DRUGS (2)
  1. AMOXICILLIN + CLAVULANATE POTASSIUM [Suspect]
     Dosage: ORAL
     Route: 048
     Dates: start: 20060609, end: 20060610
  2. AMOXICILLIN + CLAVULANATE POTASSIUM [Suspect]
     Dosage: ORAL
     Route: 048
     Dates: start: 20060609, end: 20060610

REACTIONS (1)
  - VOMITING [None]
